FAERS Safety Report 24297844 (Version 1)
Quarter: 2024Q3

REPORT INFORMATION
  Report Type: Other
  Country: GB (occurrence: GB)
  Receive Date: 20240909
  Receipt Date: 20240909
  Transmission Date: 20241016
  Serious: Yes (Other)
  Sender: MACLEODS
  Company Number: GB-VIIV HEALTHCARE LIMITED-GB2024EME103733

PATIENT

DRUGS (3)
  1. TENOFOVIR [Suspect]
     Active Substance: TENOFOVIR
     Indication: HIV infection
     Dosage: UNK, 200/245MG (TAB 30 AMA)
     Route: 065
  2. EMTRICITABINE [Suspect]
     Active Substance: EMTRICITABINE
     Indication: HIV infection
     Dosage: 200/245 MG (TAB 30 AMA)
     Route: 065
  3. TIVICAY [Suspect]
     Active Substance: DOLUTEGRAVIR SODIUM
     Indication: HIV infection
     Dosage: 50 MG (TABLETS 30)
     Route: 065

REACTIONS (3)
  - Monkeypox [Unknown]
  - Social problem [Unknown]
  - Pruritus [Unknown]
